FAERS Safety Report 6592516-7 (Version None)
Quarter: 2010Q1

REPORT INFORMATION
  Report Type: 
  Country: None (occurrence: None)
  Receive Date: 20100221
  Receipt Date: 20091019
  Transmission Date: 20100710
  Serious: No
  Sender: FDA-Public Use
  Company Number: US-ALLERGAN-0914531US

PATIENT
  Sex: Female

DRUGS (1)
  1. BOTOX COSMETIC [Suspect]
     Indication: SKIN WRINKLING
     Dosage: 25 UNITS, SINGLE
     Dates: start: 20091014, end: 20091014

REACTIONS (4)
  - ABDOMINAL PAIN UPPER [None]
  - DIZZINESS [None]
  - HEADACHE [None]
  - NAUSEA [None]
